FAERS Safety Report 13337349 (Version 1)
Quarter: 2017Q1

REPORT INFORMATION
  Report Type: Spontaneous
  Country: FR (occurrence: FR)
  Receive Date: 20170315
  Receipt Date: 20170315
  Transmission Date: 20170428
  Serious: Yes (Hospitalization, Other)
  Sender: FDA-Public Use
  Company Number: FR-ASTRAZENECA-2017SE25847

PATIENT
  Age: 31203 Day
  Sex: Male

DRUGS (13)
  1. BRILIQUE [Suspect]
     Active Substance: TICAGRELOR
     Indication: ISCHAEMIC HEART DISEASE PROPHYLAXIS
     Route: 048
     Dates: start: 20161222, end: 20170127
  2. KARDEGIC [Suspect]
     Active Substance: ASPIRIN LYSINE
     Indication: ISCHAEMIC HEART DISEASE PROPHYLAXIS
     Route: 065
     Dates: start: 20161222
  3. CORDARONE [Concomitant]
     Active Substance: AMIODARONE HYDROCHLORIDE
  4. AMOXICILLINE [Concomitant]
     Active Substance: AMOXICILLIN
  5. ATORVASTATIN [Concomitant]
     Active Substance: ATORVASTATIN
  6. COUMADINE [Suspect]
     Active Substance: WARFARIN SODIUM
     Route: 048
     Dates: start: 20161222, end: 20170127
  7. MOPRAL [Concomitant]
     Active Substance: OMEPRAZOLE SODIUM
  8. LEVOTHYROX [Concomitant]
     Active Substance: LEVOTHYROXINE
  9. BRILIQUE [Suspect]
     Active Substance: TICAGRELOR
     Indication: ISCHAEMIC HEART DISEASE PROPHYLAXIS
     Route: 048
     Dates: start: 20170202
  10. LASILIX [Concomitant]
     Active Substance: FUROSEMIDE
  11. ESIDREX [Concomitant]
     Active Substance: HYDROCHLOROTHIAZIDE
  12. NEBIVOLOL. [Concomitant]
     Active Substance: NEBIVOLOL
  13. LERCAN [Concomitant]
     Active Substance: LERCANIDIPINE

REACTIONS (6)
  - Melaena [Unknown]
  - Bronchitis [Unknown]
  - Diverticulitis [Unknown]
  - Gastric ulcer [Unknown]
  - Haemorrhage [Recovered/Resolved]
  - Anaemia [Recovering/Resolving]

NARRATIVE: CASE EVENT DATE: 20170126
